FAERS Safety Report 9649671 (Version 2)
Quarter: 2013Q4

REPORT INFORMATION
  Report Type: Report from Study
  Country: US (occurrence: US)
  Receive Date: 20131028
  Receipt Date: 20131028
  Transmission Date: 20140711
  Serious: Yes (Other)
  Sender: FDA-Public Use
  Company Number: US-PURDUE-USA-2013-0100350

PATIENT
  Age: 44 Year
  Sex: Male

DRUGS (3)
  1. OXYCONTIN (NDA 22-272) [Suspect]
     Indication: INTERVERTEBRAL DISC DEGENERATION
     Dosage: 40 MG, Q8H
     Route: 048
     Dates: start: 201208
  2. OXYCONTIN (NDA 22-272) [Suspect]
     Indication: NEURALGIA
  3. DIET FORMULATIONS FOR TREATMENT OF OBESITY [Concomitant]
     Indication: WEIGHT LOSS DIET

REACTIONS (6)
  - Road traffic accident [Unknown]
  - Panic attack [Unknown]
  - Intervertebral disc protrusion [Recovered/Resolved]
  - Nerve injury [Unknown]
  - Hypertension [Recovered/Resolved]
  - Hypoaesthesia [Unknown]
